FAERS Safety Report 10533682 (Version 1)
Quarter: 2014Q4

REPORT INFORMATION
  Report Type: Spontaneous
  Country: GB (occurrence: None)
  Receive Date: 20141021
  Receipt Date: 20141021
  Transmission Date: 20150529
  Serious: Yes (Hospitalization, Other)
  Sender: FDA-Public Use
  Company Number: None

PATIENT
  Age: 26 Year
  Sex: Female
  Weight: 80 kg

DRUGS (1)
  1. BYDUREON [Suspect]
     Active Substance: EXENATIDE
     Dosage: ONCE A WEEK GIVEN INTO/UNDER THE SKIN

REACTIONS (2)
  - Maternal exposure timing unspecified [None]
  - Abortion spontaneous [None]

NARRATIVE: CASE EVENT DATE: 20130721
